FAERS Safety Report 5416579-7 (Version None)
Quarter: 2007Q3

REPORT INFORMATION
  Report Type: 
  Country: None (occurrence: None)
  Receive Date: 20070814
  Receipt Date: 20070814
  Transmission Date: 20080115
  Serious: Yes (Disabling, Other)
  Sender: FDA-Public Use
  Company Number: None

PATIENT
  Age: 51 Year
  Sex: Female
  Weight: 74.8435 kg

DRUGS (2)
  1. CYMBALTA [Suspect]
     Indication: DEPRESSION
     Dosage: ONE CAPSULE EACH MORNING PO
     Route: 048
     Dates: start: 20060910, end: 20070627
  2. CYMBALTA [Suspect]
     Indication: PAIN IN EXTREMITY
     Dosage: ONE CAPSULE EACH MORNING PO
     Route: 048
     Dates: start: 20060910, end: 20070627

REACTIONS (3)
  - DRUG WITHDRAWAL SYNDROME [None]
  - EMOTIONAL DISORDER [None]
  - PAIN [None]
